FAERS Safety Report 9681625 (Version 1)
Quarter: 2013Q4

REPORT INFORMATION
  Report Type: Spontaneous
  Country: US (occurrence: US)
  Receive Date: 20131111
  Receipt Date: 20131111
  Transmission Date: 20140711
  Serious: Yes (Other)
  Sender: FDA-Public Use
  Company Number: US-TEVA-443669USA

PATIENT
  Sex: 0

DRUGS (1)
  1. TAMOXIFEN [Suspect]

REACTIONS (1)
  - Coeliac disease [Unknown]
